FAERS Safety Report 9012473 (Version 1)
Quarter: 2013Q1

REPORT INFORMATION
  Report Type: Spontaneous
  Country: US (occurrence: US)
  Receive Date: 20130114
  Receipt Date: 20130114
  Transmission Date: 20140127
  Serious: Yes (Other)
  Sender: FDA-Public Use
  Company Number: US-BAYER-2013-004904

PATIENT
  Sex: 0

DRUGS (1)
  1. ULTRAVIST [Suspect]

REACTIONS (4)
  - Sneezing [None]
  - Urticaria [None]
  - Swelling face [None]
  - Dyspnoea [None]
